FAERS Safety Report 5922410-3 (Version None)
Quarter: 2008Q3

REPORT INFORMATION
  Report Type: 
  Country: None (occurrence: None)
  Receive Date: 20080909
  Receipt Date: 20080610
  Transmission Date: 20090109
  Serious: Yes (Death)
  Sender: FDA-Public Use
  Company Number: 163-20785-08051153

PATIENT
  Age: 11 Year
  Sex: Male

DRUGS (1)
  1. THALOMID [Suspect]
     Indication: DESMOPLASTIC SMALL ROUND CELL TUMOUR
     Dosage: 100 MG, DAILY, ORAL
     Route: 048
     Dates: start: 20080204, end: 20080401

REACTIONS (1)
  - NEOPLASM PROGRESSION [None]
